FAERS Safety Report 4350824-4 (Version None)
Quarter: 2004Q2

REPORT INFORMATION
  Report Type: 
  Country: None (occurrence: None)
  Receive Date: 20040427
  Receipt Date: 20040412
  Transmission Date: 20050107
  Serious: No
  Sender: FDA-Public Use
  Company Number: 205360

PATIENT
  Age: 62 Year
  Sex: Male
  Weight: 81.6 kg

DRUGS (1)
  1. RAPTIVA [Suspect]
     Indication: PSORIASIS
     Dosage: 100 MG, 1/WEEK, SUBCUTANEOUS : 0.9ML, SUBCUTANEOUS
     Route: 058
     Dates: start: 20031227, end: 20040330

REACTIONS (3)
  - HAEMATOCRIT DECREASED [None]
  - WEIGHT DECREASED [None]
  - WHITE BLOOD CELL COUNT INCREASED [None]
